FAERS Safety Report 5565310-3 (Version None)
Quarter: 2007Q4

REPORT INFORMATION
  Report Type: 
  Country: None (occurrence: None)
  Receive Date: 20071218
  Receipt Date: 20071207
  Transmission Date: 20080405
  Serious: Yes (Other)
  Sender: FDA-Public Use
  Company Number: US-PFIZER INC-2006035189

PATIENT
  Sex: Female
  Weight: 62.6 kg

DRUGS (7)
  1. LIPITOR [Suspect]
     Indication: BLOOD CHOLESTEROL INCREASED
     Route: 048
  2. ACTONEL [Concomitant]
     Route: 065
  3. ROCALTROL [Concomitant]
     Route: 065
  4. LEVOTHYROXINE SODIUM [Concomitant]
     Route: 065
  5. HYDROCHLOROTHIAZIDE [Concomitant]
     Route: 065
  6. LABETALOL HCL [Concomitant]
     Route: 065
  7. CALCIUM [Concomitant]
     Route: 065

REACTIONS (8)
  - DIZZINESS [None]
  - DYSPNOEA [None]
  - FOOD ALLERGY [None]
  - GAIT DISTURBANCE [None]
  - INSOMNIA [None]
  - MUSCLE SPASMS [None]
  - OCULAR ICTERUS [None]
  - THYROID FUNCTION TEST ABNORMAL [None]
